FAERS Safety Report 24605102 (Version 1)
Quarter: 2024Q4

REPORT INFORMATION
  Report Type: Spontaneous
  Country: US (occurrence: US)
  Receive Date: 20241111
  Receipt Date: 20241111
  Transmission Date: 20250114
  Serious: Yes (Other)
  Sender: PARATEK PHARMACEUTICALS
  Company Number: US-PARATEK PHARMACEUTICALS, INC.-2024PTK00590

PATIENT
  Age: 24 Year
  Sex: Male

DRUGS (3)
  1. NUZYRA [Suspect]
     Active Substance: OMADACYCLINE
     Indication: Mycobacterium abscessus infection
     Dosage: UNK
  2. LINEZOLID [Concomitant]
     Active Substance: LINEZOLID
  3. MEROPENEM [Concomitant]
     Active Substance: MEROPENEM

REACTIONS (3)
  - Aspartate aminotransferase increased [Unknown]
  - Off label use [Recovered/Resolved]
  - Incorrect product administration duration [Recovered/Resolved]
